FAERS Safety Report 14666335 (Version 1)
Quarter: 2018Q1

REPORT INFORMATION
  Report Type: Spontaneous
  Country: US (occurrence: US)
  Receive Date: 20180321
  Receipt Date: 20180321
  Transmission Date: 20180509
  Serious: No
  Sender: FDA-Public Use
  Company Number: US-MYLANLABS-2018M1018079

PATIENT
  Age: 72 Year
  Sex: Female
  Weight: 44 kg

DRUGS (5)
  1. LEVOTHYROXINE. [Suspect]
     Active Substance: LEVOTHYROXINE
     Dosage: 3 DF, 3XW
     Route: 048
  2. HYDROCHLOROTHIAZIDE. [Concomitant]
     Active Substance: HYDROCHLOROTHIAZIDE
     Indication: BLOOD PRESSURE ABNORMAL
     Dosage: UNK
  3. LEVOTHYROXINE. [Suspect]
     Active Substance: LEVOTHYROXINE
     Dosage: 2 DF, 3XW
     Route: 048
  4. LEVOTHYROXINE. [Suspect]
     Active Substance: LEVOTHYROXINE
     Indication: HYPOTHYROIDISM
     Dosage: UNK
     Route: 048
     Dates: start: 20170501
  5. FOSINOPRIL [Concomitant]
     Active Substance: FOSINOPRIL
     Indication: BLOOD PRESSURE ABNORMAL
     Dosage: UNK

REACTIONS (7)
  - Blood thyroid stimulating hormone increased [Unknown]
  - Fatigue [Not Recovered/Not Resolved]
  - Intentional product use issue [Unknown]
  - Underweight [Not Recovered/Not Resolved]
  - Stress [Unknown]
  - Blood pressure increased [Unknown]
  - Eating disorder [Not Recovered/Not Resolved]
